FAERS Safety Report 6252418-2 (Version None)
Quarter: 2009Q3

REPORT INFORMATION
  Report Type: 
  Country: None (occurrence: None)
  Receive Date: 20090701
  Receipt Date: 20090623
  Transmission Date: 20100115
  Serious: Yes (Other)
  Sender: FDA-Public Use
  Company Number: US-JNJFOC-20090608700

PATIENT
  Sex: Female
  Weight: 68.04 kg

DRUGS (9)
  1. FENTANYL TRANSDERMAL SYSTEM [Suspect]
     Route: 062
  2. FENTANYL TRANSDERMAL SYSTEM [Suspect]
     Route: 062
  3. FENTANYL TRANSDERMAL SYSTEM [Suspect]
     Indication: BACK PAIN
     Route: 062
  4. NEURONTIN [Suspect]
     Indication: DRUG USE FOR UNKNOWN INDICATION
     Dosage: AT BED TIME
     Route: 048
  5. SOMA [Concomitant]
     Indication: MUSCLE SPASMS
     Dosage: AS NEEDED
     Route: 048
  6. VALIUM [Concomitant]
     Indication: ANXIETY
     Dosage: AS NEEDED
     Route: 048
  7. EASY LAX [Concomitant]
     Indication: ABNORMAL FAECES
     Route: 048
  8. PERCOCET [Concomitant]
     Indication: BREAKTHROUGH PAIN
     Route: 048
  9. XANAX [Concomitant]
     Indication: SLEEP DISORDER THERAPY
     Dosage: AT BED TIME
     Route: 048

REACTIONS (9)
  - FALL [None]
  - HYPERHIDROSIS [None]
  - HYPERTENSION [None]
  - INCORRECT ROUTE OF DRUG ADMINISTRATION [None]
  - MUSCULAR WEAKNESS [None]
  - NAUSEA [None]
  - VITAMIN B12 DECREASED [None]
  - WEIGHT INCREASED [None]
  - WRONG TECHNIQUE IN DRUG USAGE PROCESS [None]
